FAERS Safety Report 10370440 (Version 2)
Quarter: 2015Q3

REPORT INFORMATION
  Report Type: Spontaneous
  Country: US (occurrence: US)
  Receive Date: 20140805
  Receipt Date: 20150813
  Transmission Date: 20151125
  Serious: Yes (Other)
  Sender: FDA-Public Use
  Company Number: US-H14001-14-00320

PATIENT
  Age: 15 Year
  Sex: Male

DRUGS (9)
  1. FAMOTIDINE. [Concomitant]
     Active Substance: FAMOTIDINE
     Indication: PROPHYLAXIS AGAINST GASTROINTESTINAL ULCER
     Route: 065
     Dates: start: 2010, end: 2010
  2. PANTOPRAZOLE [Concomitant]
     Active Substance: PANTOPRAZOLE SODIUM
     Route: 042
     Dates: start: 2010
  3. DEXAMETHASONE. [Suspect]
     Active Substance: DEXAMETHASONE
     Indication: POSTOPERATIVE CARE
     Route: 042
     Dates: start: 2010, end: 2010
  4. HETASTARCH. [Concomitant]
     Active Substance: HETASTARCH
     Indication: POSTOPERATIVE CARE
     Route: 065
     Dates: start: 2010
  5. PANTOPRAZOLE [Concomitant]
     Active Substance: PANTOPRAZOLE SODIUM
     Indication: PROPHYLAXIS AGAINST GASTROINTESTINAL ULCER
     Route: 042
     Dates: start: 2010, end: 2010
  6. KETOROLAC [Suspect]
     Active Substance: KETOROLAC\KETOROLAC TROMETHAMINE
     Indication: POSTOPERATIVE CARE
     Route: 042
     Dates: start: 2010, end: 2010
  7. RINGER^S SOLUTION [Concomitant]
     Active Substance: RINGER^S SOLUTION
     Indication: POSTOPERATIVE CARE
     Route: 065
     Dates: start: 2010
  8. KETOROLAC [Suspect]
     Active Substance: KETOROLAC\KETOROLAC TROMETHAMINE
     Route: 042
     Dates: start: 2010, end: 2010
  9. KETOROLAC [Suspect]
     Active Substance: KETOROLAC\KETOROLAC TROMETHAMINE
     Route: 042
     Dates: start: 2010, end: 2010

REACTIONS (9)
  - Drug interaction [Recovered/Resolved]
  - Upper gastrointestinal haemorrhage [Recovered/Resolved]
  - Tachycardia [None]
  - Tachypnoea [None]
  - Lethargy [None]
  - Gastric ulcer [None]
  - Anxiety [None]
  - Duodenal ulcer [None]
  - Haemoglobin decreased [None]

NARRATIVE: CASE EVENT DATE: 2010
